FAERS Safety Report 6207424-0 (Version None)
Quarter: 2009Q2

REPORT INFORMATION
  Report Type: 
  Country: None (occurrence: None)
  Receive Date: 20090527
  Receipt Date: 20090527
  Transmission Date: 20091009
  Serious: Yes (Other)
  Sender: FDA-Public Use
  Company Number: None

PATIENT
  Sex: Female
  Weight: 77.1115 kg

DRUGS (1)
  1. OCELLA N/A BARR [Suspect]
     Indication: CONTRACEPTION
     Dosage: 21 DAYS WITH HORMONES 1 PER DAY PO
     Route: 048
     Dates: start: 20090128, end: 20090214

REACTIONS (7)
  - ABDOMINAL DISTENSION [None]
  - FLUID RETENTION [None]
  - INCREASED APPETITE [None]
  - OVARIAN CYST [None]
  - PRODUCT SUBSTITUTION ISSUE [None]
  - PRURITUS GENERALISED [None]
  - RASH [None]
